FAERS Safety Report 7752324-8 (Version None)
Quarter: 2011Q3

REPORT INFORMATION
  Report Type: 
  Country: None (occurrence: None)
  Receive Date: 20110915
  Receipt Date: 20110901
  Transmission Date: 20111222
  Serious: No
  Sender: FDA-Public Use
  Company Number: US-ELI_LILLY_AND_COMPANY-US201107002839

PATIENT
  Age: 40 Year
  Sex: Female
  Weight: 47.166 kg

DRUGS (4)
  1. IBUPROFEN [Concomitant]
  2. OMEPRAZOLE [Concomitant]
  3. CYMBALTA [Suspect]
     Indication: FIBROMYALGIA
     Dosage: 30 MG, QD
     Route: 048
     Dates: start: 20110615, end: 20110615
  4. XANAX [Concomitant]

REACTIONS (5)
  - BURNING SENSATION [None]
  - THROAT TIGHTNESS [None]
  - HYPERSENSITIVITY [None]
  - NAUSEA [None]
  - ERYTHEMA [None]
